FAERS Safety Report 10062634 (Version 1)
Quarter: 2014Q1

REPORT INFORMATION
  Report Type: Spontaneous
  Country: US (occurrence: None)
  Receive Date: 20140318
  Receipt Date: 20140318
  Transmission Date: 20141002
  Serious: Yes (Disabling)
  Sender: FDA-Public Use
  Company Number: 163-21660-13021281

PATIENT
  Age: 70 Year
  Sex: Female

DRUGS (1)
  1. ABRAXANE [Suspect]
     Indication: OVARIAN CANCER
     Dosage: 3 IN 28 D, IV
     Route: 042
     Dates: start: 20120524, end: 20130117

REACTIONS (2)
  - Ovarian cancer [None]
  - Disease progression [None]
